FAERS Safety Report 9878422 (Version 1)
Quarter: 2014Q1

REPORT INFORMATION
  Report Type: Spontaneous
  Country: US (occurrence: US)
  Receive Date: 20140206
  Receipt Date: 20140206
  Transmission Date: 20141002
  Serious: No
  Sender: FDA-Public Use
  Company Number: US-ALLERGAN-1311782US

PATIENT
  Sex: Female

DRUGS (5)
  1. BOTOX COSMETIC [Suspect]
     Indication: SKIN WRINKLING
     Dosage: 30 UNITS, SINGLE
     Route: 030
     Dates: start: 20130730, end: 20130730
  2. BOTOX COSMETIC [Suspect]
     Indication: SKIN WRINKLING
  3. BOTOX COSMETIC [Suspect]
     Indication: SKIN WRINKLING
  4. BOTOX [Suspect]
     Indication: HYPERHIDROSIS
     Dosage: 50 UNITS, SINGLE
     Route: 030
     Dates: start: 20130730, end: 20130730
  5. BOTOX [Suspect]
     Dosage: 50 UNITS, SINGLE
     Route: 030
     Dates: start: 20130730, end: 20130730

REACTIONS (6)
  - Anosmia [Not Recovered/Not Resolved]
  - Ageusia [Not Recovered/Not Resolved]
  - Weight decreased [Unknown]
  - Wrong technique in drug usage process [Unknown]
  - Wrong technique in drug usage process [Unknown]
  - Decreased appetite [Not Recovered/Not Resolved]
